FAERS Safety Report 18023086 (Version 2)
Quarter: 2020Q3

REPORT INFORMATION
  Report Type: Report from Study
  Country: DE (occurrence: DE)
  Receive Date: 20200714
  Receipt Date: 20200806
  Transmission Date: 20201103
  Serious: Yes (Hospitalization, Other)
  Sender: FDA-Public Use
  Company Number: DE-SHIRE-DE202020532

PATIENT

DRUGS (5)
  1. TEDUGLUTIDE [Suspect]
     Active Substance: TEDUGLUTIDE
     Indication: SHORT-BOWEL SYNDROME
     Dosage: 0.4 MILLILITER, 1X/DAY:QD
     Route: 058
     Dates: start: 20190723
  2. TEDUGLUTIDE [Suspect]
     Active Substance: TEDUGLUTIDE
     Indication: SHORT-BOWEL SYNDROME
     Dosage: 0.4 MILLILITER, 1X/DAY:QD
     Route: 058
     Dates: start: 20190723
  3. TEDUGLUTIDE [Suspect]
     Active Substance: TEDUGLUTIDE
     Indication: SHORT-BOWEL SYNDROME
     Dosage: 0.4 MILLILITER, 1X/DAY:QD
     Route: 058
     Dates: start: 20190723
  4. MEROPENEM. [Concomitant]
     Active Substance: MEROPENEM
     Indication: PRODUCT USED FOR UNKNOWN INDICATION
  5. TEDUGLUTIDE [Suspect]
     Active Substance: TEDUGLUTIDE
     Indication: SHORT-BOWEL SYNDROME
     Dosage: 0.4 MILLILITER, 1X/DAY:QD
     Route: 058
     Dates: start: 20190723

REACTIONS (14)
  - Device related infection [Recovering/Resolving]
  - Thrombocytopenia [Unknown]
  - Condition aggravated [Unknown]
  - Pneumonia [Unknown]
  - Chills [Unknown]
  - Gastrooesophageal reflux disease [Unknown]
  - Diarrhoea [Unknown]
  - Cholelithiasis [Unknown]
  - Mesenteric haematoma [Unknown]
  - Pyrexia [Unknown]
  - Infusion related reaction [Unknown]
  - Haemorrhagic ascites [Unknown]
  - Cardiomegaly [Unknown]
  - Vascular device infection [Unknown]

NARRATIVE: CASE EVENT DATE: 20200618
